FAERS Safety Report 10073858 (Version 2)
Quarter: 2014Q2

REPORT INFORMATION
  Report Type: Spontaneous
  Country: US (occurrence: US)
  Receive Date: 20140412
  Receipt Date: 20140522
  Transmission Date: 20141212
  Serious: No
  Sender: FDA-Public Use
  Company Number: US-009507513-1404USA003691

PATIENT
  Age: 46 Year
  Sex: Female

DRUGS (3)
  1. ELAVIL [Suspect]
     Dosage: 40 MG, UNK
     Route: 048
  2. TOPIRAMATE [Concomitant]
     Dosage: 100 MG, UNK
  3. PREDNISOLONE [Concomitant]
     Dosage: 40 MG, UNK
     Route: 042

REACTIONS (1)
  - Drug ineffective [Recovered/Resolved]
